FAERS Safety Report 19892102 (Version 1)
Quarter: 2021Q3

REPORT INFORMATION
  Report Type: Report from Study
  Country: CN (occurrence: CN)
  Receive Date: 20210928
  Receipt Date: 20210928
  Transmission Date: 20211014
  Serious: Yes (Hospitalization)
  Sender: FDA-Public Use
  Company Number: CN-KARYOPHARM-2021KPT001227

PATIENT
  Age: 56 Year
  Sex: Female

DRUGS (10)
  1. MEGESTROL [Concomitant]
     Active Substance: MEGESTROL
     Indication: DECREASED APPETITE
     Dosage: 160 MG, QD
     Route: 048
     Dates: start: 20210514
  2. MEDROXYPROGESTERONE [Concomitant]
     Active Substance: MEDROXYPROGESTERONE
     Indication: DECREASED APPETITE
     Dosage: 500 MG, QD
     Route: 048
     Dates: start: 20210826
  3. ILAPRAZOLE [Concomitant]
     Active Substance: ILAPRAZOLE
     Indication: CANCER PAIN
     Dosage: 10 MG, QD
     Route: 048
     Dates: start: 20210514
  4. OLANZAPINE. [Concomitant]
     Active Substance: OLANZAPINE
     Indication: PROPHYLAXIS OF NAUSEA AND VOMITING
     Dosage: 5 MG, QD
     Route: 048
     Dates: start: 20210813
  5. CITICOLINE [Concomitant]
     Active Substance: CITICOLINE
     Indication: NERVOUS SYSTEM DISORDER PROPHYLAXIS
     Dosage: 0.2 G, TID
     Route: 048
     Dates: start: 20210813
  6. SELINEXOR [Suspect]
     Active Substance: SELINEXOR
     Indication: DIFFUSE LARGE B-CELL LYMPHOMA
     Dosage: 60 MG, 2X/WEEK ON FRIDAY AND SUNDAY
     Route: 048
     Dates: start: 20210507, end: 20210905
  7. HYDROTALCITE [Concomitant]
     Active Substance: HYDROTALCITE
     Indication: CANCER PAIN
     Dosage: 0.5 G, TID
     Route: 048
     Dates: start: 20210514
  8. MECOBALAMIN [Concomitant]
     Active Substance: METHYLCOBALAMIN
     Indication: NERVOUS SYSTEM DISORDER PROPHYLAXIS
     Dosage: 0.5 MG, TID
     Route: 048
     Dates: start: 20210813
  9. DROTAVERINE [Concomitant]
     Active Substance: DROTAVERINE
     Indication: CANCER PAIN
     Dosage: 40 MG, TID
     Route: 048
     Dates: start: 20210514
  10. POTASSIUM CHLORIDE. [Concomitant]
     Active Substance: POTASSIUM CHLORIDE
     Indication: HYPOKALAEMIA
     Dosage: 1 G, BID
     Route: 048
     Dates: start: 20210826

REACTIONS (1)
  - Anaemia [Not Recovered/Not Resolved]

NARRATIVE: CASE EVENT DATE: 20210910
